FAERS Safety Report 8384754-8 (Version None)
Quarter: 2012Q2

REPORT INFORMATION
  Report Type: 
  Country: None (occurrence: None)
  Receive Date: 20120524
  Receipt Date: 20120518
  Transmission Date: 20120825
  Serious: Yes (Other)
  Sender: FDA-Public Use
  Company Number: CA-ROCHE-1071497

PATIENT
  Sex: Male
  Weight: 63.56 kg

DRUGS (6)
  1. ACETAMINOPHEN [Concomitant]
     Indication: PREMEDICATION
     Route: 048
     Dates: start: 20120418, end: 20120418
  2. METHYLPREDNISOLONE [Concomitant]
     Indication: PREMEDICATION
     Route: 042
     Dates: start: 20120418, end: 20120418
  3. DIPHENHYDRAMINE HCL [Concomitant]
     Indication: PREMEDICATION
     Route: 048
     Dates: start: 20120418, end: 20120418
  4. MABTHERA [Suspect]
     Indication: RHEUMATOID ARTHRITIS
     Route: 042
     Dates: start: 20120418
  5. LEFLUNOMIDE [Concomitant]
  6. OMEPRAZOLE [Concomitant]

REACTIONS (1)
  - DIVERTICULUM [None]
